FAERS Safety Report 19072998 (Version 2)
Quarter: 2021Q3

REPORT INFORMATION
  Report Type: Other
  Country: CA (occurrence: CA)
  Receive Date: 20210330
  Receipt Date: 20210720
  Transmission Date: 20211014
  Serious: Yes (Other)
  Sender: FDA-Public Use
  Company Number: CA-ROCHE-2399248

PATIENT
  Age: 30 Year
  Sex: Male

DRUGS (5)
  1. LOPROX [Concomitant]
     Active Substance: CICLOPIROX\CICLOPIROX OLAMINE
  2. COVID?19 VACCINE [Concomitant]
     Dates: start: 20210420
  3. CITALOPRAM [Concomitant]
     Active Substance: CITALOPRAM HYDROBROMIDE
     Indication: ANXIETY
     Route: 065
  4. THC [Concomitant]
     Active Substance: DRONABINOL
     Dosage: USES IT BROAD THERAPEUTIC CARE ? INJECTIONS ;
  5. OCREVUS [Suspect]
     Active Substance: OCRELIZUMAB
     Indication: RELAPSING-REMITTING MULTIPLE SCLEROSIS
     Dosage: 300 MG AT DAY 0 AND 14, THEN 600 MG EVERY 6 MONTH
     Route: 042
     Dates: start: 20190826

REACTIONS (13)
  - Insomnia [Recovered/Resolved]
  - Night sweats [Recovered/Resolved]
  - Haematochezia [Not Recovered/Not Resolved]
  - Throat irritation [Unknown]
  - Peripheral vascular disorder [Unknown]
  - Headache [Recovered/Resolved]
  - Flushing [Recovering/Resolving]
  - Tinea infection [Not Recovered/Not Resolved]
  - Neuropathy peripheral [Not Recovered/Not Resolved]
  - Rash [Not Recovered/Not Resolved]
  - Localised infection [Not Recovered/Not Resolved]
  - Abdominal discomfort [Not Recovered/Not Resolved]
  - Abdominal pain upper [Not Recovered/Not Resolved]

NARRATIVE: CASE EVENT DATE: 201909
